FAERS Safety Report 23076053 (Version 2)
Quarter: 2023Q4

REPORT INFORMATION
  Report Type: Report from Study
  Country: PL (occurrence: PL)
  Receive Date: 20231017
  Receipt Date: 20231023
  Transmission Date: 20240110
  Serious: Yes (Hospitalization)
  Sender: FDA-Public Use
  Company Number: PL-ABBVIE-5447050

PATIENT
  Age: 39 Year
  Sex: Female
  Weight: 52 kg

DRUGS (10)
  1. TNB-383B [Suspect]
     Active Substance: TNB-383B
     Indication: Plasma cell myeloma refractory
     Route: 042
     Dates: start: 20230816, end: 20230912
  2. DEXAMETHASONE [Suspect]
     Active Substance: DEXAMETHASONE
     Indication: Plasma cell myeloma refractory
     Dosage: INTRAVENOUS AND ORAL
     Dates: start: 20230816, end: 20230926
  3. DARATUMUMAB [Suspect]
     Active Substance: DARATUMUMAB
     Indication: Plasma cell myeloma refractory
     Route: 042
     Dates: start: 20230818, end: 20230926
  4. ORNITHINE ASPARTATE [Concomitant]
     Active Substance: ORNITHINE ASPARTATE
     Indication: Hepatic function abnormal
     Route: 048
     Dates: start: 20230819
  5. URSODIOL [Concomitant]
     Active Substance: URSODIOL
     Indication: Hepatic function abnormal
     Route: 048
     Dates: start: 202308
  6. TIMONACIC [Concomitant]
     Active Substance: TIMONACIC
     Indication: Hepatic function abnormal
     Route: 048
     Dates: start: 20230818
  7. ALLOPURINOL [Concomitant]
     Active Substance: ALLOPURINOL
     Indication: Prophylaxis
     Route: 048
     Dates: start: 20230818
  8. HASCOVIR [Concomitant]
     Indication: Infection prophylaxis
     Route: 048
     Dates: start: 20230817
  9. BISEPTOL [Concomitant]
     Active Substance: SULFAMETHOXAZOLE\TRIMETHOPRIM
     Indication: Infection prophylaxis
     Dosage: TIME INTERVAL: 0.33333333 WEEKS
     Route: 048
     Dates: start: 20230816
  10. FILGRASTIM [Concomitant]
     Active Substance: FILGRASTIM
     Indication: Prophylaxis
     Dosage: DOSAGE: 48 10^6 IU
     Route: 058
     Dates: start: 20230914

REACTIONS (1)
  - Lower respiratory tract infection [Not Recovered/Not Resolved]

NARRATIVE: CASE EVENT DATE: 20231010
